FAERS Safety Report 9225480 (Version 1)
Quarter: 2013Q2

REPORT INFORMATION
  Report Type: Spontaneous
  Country: US (occurrence: None)
  Receive Date: 20130410
  Receipt Date: 20130410
  Transmission Date: 20140414
  Serious: Yes (Hospitalization)
  Sender: FDA-Public Use
  Company Number: None

PATIENT
  Age: 67 Year
  Sex: Female
  Weight: 81.65 kg

DRUGS (1)
  1. PROMETHAZINE [Suspect]
     Indication: VERTIGO
     Dosage: 25MG  1 TAB 4 TO 6 HRS.  PO
     Route: 048
     Dates: start: 20130405, end: 20130406

REACTIONS (6)
  - Headache [None]
  - Visual impairment [None]
  - Hyperhidrosis [None]
  - Nausea [None]
  - Blood pressure increased [None]
  - Presyncope [None]
